FAERS Safety Report 11321864 (Version 3)
Quarter: 2017Q1

REPORT INFORMATION
  Report Type: Spontaneous
  Country: JP (occurrence: JP)
  Receive Date: 20150729
  Receipt Date: 20170103
  Transmission Date: 20170428
  Serious: Yes (Hospitalization, Other)
  Sender: FDA-Public Use
  Company Number: JP-BAYER-2015-381177

PATIENT
  Age: 38 Year
  Sex: Female

DRUGS (1)
  1. BAYASPIRIN 100 MG [Suspect]
     Active Substance: ASPIRIN
     Indication: PROTEIN S DECREASED
     Dosage: UNK
     Route: 048

REACTIONS (4)
  - Intra-abdominal haemorrhage [None]
  - Premature delivery [None]
  - Vascular pseudoaneurysm ruptured [Recovered/Resolved]
  - Maternal exposure during pregnancy [Recovered/Resolved]

NARRATIVE: CASE EVENT DATE: 20150108
